FAERS Safety Report 10464824 (Version 1)
Quarter: 2014Q3

REPORT INFORMATION
  Report Type: Report from Study
  Country: CA (occurrence: CA)
  Receive Date: 20140919
  Receipt Date: 20140919
  Transmission Date: 20150326
  Serious: Yes (Other)
  Sender: FDA-Public Use
  Company Number: CA-BRISTOL-MYERS SQUIBB COMPANY-21381090

PATIENT
  Age: 59 Year
  Sex: Male

DRUGS (1)
  1. SPRYCEL [Suspect]
     Active Substance: DASATINIB
     Indication: CHRONIC MYELOID LEUKAEMIA
     Dosage: DOSE REDUCED FROM 100 MG TO 50 MG
     Route: 048
     Dates: start: 20131124

REACTIONS (3)
  - Haematochezia [Unknown]
  - Colon neoplasm [Unknown]
  - Drug intolerance [Unknown]
